FAERS Safety Report 6314222-6 (Version None)
Quarter: 2009Q3

REPORT INFORMATION
  Report Type: 
  Country: None (occurrence: None)
  Receive Date: 20090817
  Receipt Date: 20090804
  Transmission Date: 20100115
  Serious: Yes (Hospitalization, Other)
  Sender: FDA-Public Use
  Company Number: 2009AP003189

PATIENT
  Age: 69 Year
  Sex: Male

DRUGS (6)
  1. AMIODARONE HCL [Suspect]
     Dosage: 400 MG; QD;
  2. ASPIRIN [Concomitant]
  3. BECLOMETASONE [Concomitant]
  4. IPRATROPIUM [Concomitant]
  5. DILTIAZEM [Concomitant]
  6. ISOSORBIDE DINITRATE [Concomitant]

REACTIONS (13)
  - ABASIA [None]
  - ATRIOVENTRICULAR BLOCK FIRST DEGREE [None]
  - BUNDLE BRANCH BLOCK LEFT [None]
  - CARDIAC FAILURE CONGESTIVE [None]
  - DRUG TOXICITY [None]
  - HAEMOGLOBIN DECREASED [None]
  - LUNG INFILTRATION [None]
  - PLEURAL EFFUSION [None]
  - PULMONARY ALVEOLAR HAEMORRHAGE [None]
  - RESPIRATORY FAILURE [None]
  - RESPIRATORY RATE INCREASED [None]
  - SKIN DISCOLOURATION [None]
  - WHITE BLOOD CELL COUNT INCREASED [None]
